FAERS Safety Report 25745690 (Version 1)
Quarter: 2025Q3

REPORT INFORMATION
  Report Type: Spontaneous
  Country: EU (occurrence: EU)
  Receive Date: 20250901
  Receipt Date: 20250901
  Transmission Date: 20251021
  Serious: Yes (Hospitalization)
  Sender: JOHNSON AND JOHNSON
  Company Number: None

PATIENT
  Age: 57 Year
  Sex: Male
  Weight: 90 kg

DRUGS (10)
  1. DARZALEX [Suspect]
     Active Substance: DARATUMUMAB
     Indication: Plasma cell myeloma
     Route: 042
     Dates: start: 20250527, end: 20250624
  2. VELCADE [Suspect]
     Active Substance: BORTEZOMIB
     Indication: Plasma cell myeloma
     Route: 042
     Dates: start: 20250527, end: 20250624
  3. VELCADE [Suspect]
     Active Substance: BORTEZOMIB
  4. NEULASTA [Suspect]
     Active Substance: PEGFILGRASTIM
     Indication: Congenital aplasia
     Route: 058
     Dates: start: 20250603, end: 20250603
  5. NEULASTA [Suspect]
     Active Substance: PEGFILGRASTIM
     Route: 058
     Dates: start: 20250624, end: 20250624
  6. REVLIMID [Suspect]
     Active Substance: LENALIDOMIDE
     Indication: Plasma cell myeloma
     Route: 048
     Dates: start: 20250527, end: 20250624
  7. ROVAMYCINE 1,500,000 IU, film-coated tablet [Concomitant]
     Indication: Product used for unknown indication
     Route: 048
     Dates: start: 20250703, end: 20250707
  8. ROVAMYCINE 1,500,000 IU, film-coated tablet [Concomitant]
  9. MEROPENEM ARROW 1 g, powder for solution for injection/infusion [Concomitant]
     Indication: Product used for unknown indication
     Route: 042
     Dates: start: 20250703, end: 20250711
  10. DAPTOMYCIN ACCORD 500 mg, powder for solution for injection/infusion [Concomitant]
     Indication: Product used for unknown indication
     Route: 042
     Dates: start: 20250703, end: 20250710

REACTIONS (1)
  - Vasculitis [Recovering/Resolving]

NARRATIVE: CASE EVENT DATE: 20250703
